FAERS Safety Report 16606935 (Version 1)
Quarter: 2019Q3

REPORT INFORMATION
  Report Type: Spontaneous
  Country: FR (occurrence: FR)
  Receive Date: 20190722
  Receipt Date: 20190722
  Transmission Date: 20191004
  Serious: Yes (Life-Threatening, Hospitalization)
  Sender: FDA-Public Use
  Company Number: FR-ZYDUS-038646

PATIENT
  Age: 87 Year
  Sex: Male

DRUGS (7)
  1. DICLOFENAC [Interacting]
     Active Substance: DICLOFENAC
     Indication: SCIATICA
     Route: 048
     Dates: start: 20190611, end: 20190617
  2. POLAMINE DE DICLOFENAC [Suspect]
     Active Substance: DICLOFENAC EPOLAMINE
     Indication: SCIATICA
     Route: 003
     Dates: start: 20190611, end: 20190617
  3. SPIRONOLACTONE. [Interacting]
     Active Substance: SPIRONOLACTONE
     Indication: HYPERTENSION
     Route: 048
  4. FLECAINIDE [Concomitant]
     Active Substance: FLECAINIDE
  5. ESOMEPRAZOLE/ESOMEPRAZOLE MAGNESIUM/ESOMEPRAZOLE SODIUM [Concomitant]
  6. FUROSEMIDE. [Interacting]
     Active Substance: FUROSEMIDE
     Indication: HYPERTENSION
     Route: 048
  7. PARACETAMOL [Concomitant]
     Active Substance: ACETAMINOPHEN

REACTIONS (3)
  - Hyperkalaemia [Recovered/Resolved]
  - Acute kidney injury [Recovering/Resolving]
  - Malaise [Recovered/Resolved]

NARRATIVE: CASE EVENT DATE: 20190617
